FAERS Safety Report 15678493 (Version 1)
Quarter: 2018Q4

REPORT INFORMATION
  Report Type: Spontaneous
  Country: US (occurrence: US)
  Receive Date: 20181130
  Receipt Date: 20181130
  Transmission Date: 20190205
  Serious: No
  Sender: FDA-Public Use
  Company Number: None

PATIENT
  Age: 71 Year
  Sex: Female

DRUGS (1)
  1. TEGRETOL [Suspect]
     Active Substance: CARBAMAZEPINE
     Route: 048
     Dates: start: 20180526, end: 20181130

REACTIONS (1)
  - Tachycardia [None]

NARRATIVE: CASE EVENT DATE: 20180526
